FAERS Safety Report 23316539 (Version 3)
Quarter: 2024Q4

REPORT INFORMATION
  Report Type: Spontaneous
  Country: US (occurrence: US)
  Receive Date: 20231219
  Receipt Date: 20241218
  Transmission Date: 20250114
  Serious: No
  Sender: ROCHE
  Company Number: US-ROCHE-3458060

PATIENT
  Age: 24 Year
  Sex: Male
  Weight: 56.7 kg

DRUGS (5)
  1. HEMLIBRA [Suspect]
     Active Substance: EMICIZUMAB-KXWH
     Indication: Factor VIII deficiency
     Dosage: STRENGTH 60 MG/0.4 ML, 105MG/0.7ML?ON AN UNSPECIFIED DATE IN /JAN/2022, RECEIVED SUBSEQUENT DOSE.
     Route: 058
     Dates: start: 202201
  2. HEMLIBRA [Suspect]
     Active Substance: EMICIZUMAB-KXWH
     Dosage: STRENGTH 60 MG/0.4 ML, 105MG/0.7ML?ON AN UNSPECIFIED DATE IN /JAN/2022, RECEIVED SUBSEQUENT DOSE.
     Route: 058
     Dates: start: 202201
  3. HEMLIBRA [Suspect]
     Active Substance: EMICIZUMAB-KXWH
     Dosage: STRENGTH 60 MG/0.4 ML, 105MG/0.7ML?ON AN UNSPECIFIED DATE IN /JAN/2022, RECEIVED SUBSEQUENT DOSE.
     Route: 058
     Dates: start: 202201
  4. KOVALTRY [Concomitant]
     Active Substance: ANTIHEMOPHILIC FACTOR, HUMAN RECOMBINANT
  5. KOGENATE FS [Concomitant]
     Active Substance: ANTIHEMOPHILIC FACTOR, HUMAN RECOMBINANT

REACTIONS (2)
  - Haemorrhage [Unknown]
  - Muscle haemorrhage [Unknown]

NARRATIVE: CASE EVENT DATE: 20241107
